FAERS Safety Report 9205741 (Version 3)
Quarter: 2013Q2

REPORT INFORMATION
  Report Type: Other
  Country: US (occurrence: US)
  Receive Date: 20130403
  Receipt Date: 20130423
  Transmission Date: 20140414
  Serious: Yes (Hospitalization)
  Sender: FDA-Public Use
  Company Number: US-SHIRE-ALL1-2013-01998

PATIENT
  Age: 15 Year
  Sex: Male

DRUGS (1)
  1. ELAPRASE [Suspect]
     Indication: MUCOPOLYSACCHARIDOSIS II
     Dosage: UNK, 1X/2WKS
     Route: 041
     Dates: start: 20060912

REACTIONS (12)
  - Agitation [Unknown]
  - Cheilitis [Unknown]
  - Heart rate increased [Not Recovered/Not Resolved]
  - Flushing [Recovered/Resolved]
  - Hypertension [Unknown]
  - Erythema [Recovered/Resolved]
  - Infusion related reaction [Not Recovered/Not Resolved]
  - Lung disorder [Unknown]
  - Fatigue [Not Recovered/Not Resolved]
  - Chills [Unknown]
  - Sneezing [Unknown]
  - Sleep disorder [Unknown]
